FAERS Safety Report 17466204 (Version 6)
Quarter: 2020Q2

REPORT INFORMATION
  Report Type: Spontaneous
  Country: US (occurrence: US)
  Receive Date: 20200227
  Receipt Date: 20200615
  Transmission Date: 20200713
  Serious: Yes (Other)
  Sender: FDA-Public Use
  Company Number: NVSC2020US055638

PATIENT
  Age: 23 Year
  Sex: Female

DRUGS (4)
  1. ZOFRAN [Suspect]
     Active Substance: ONDANSETRON HYDROCHLORIDE
     Indication: PRODUCT USED FOR UNKNOWN INDICATION
     Dosage: 4 MG
     Route: 042
     Dates: start: 20150814, end: 201508
  2. ZOFRAN [Suspect]
     Active Substance: ONDANSETRON HYDROCHLORIDE
     Indication: PRODUCT USED FOR UNKNOWN INDICATION
     Dosage: 04 MG, Q4H, AS NEEDED (PRN)
     Route: 048
     Dates: start: 20150224
  3. ZOFRAN ODT [Suspect]
     Active Substance: ONDANSETRON HYDROCHLORIDE
     Indication: PRODUCT USED FOR UNKNOWN INDICATION
     Route: 048
  4. ZOFRAN [Suspect]
     Active Substance: ONDANSETRON HYDROCHLORIDE
     Indication: MORNING SICKNESS
     Dosage: 04 MG, PRN
     Route: 065
     Dates: start: 20150224, end: 201508

REACTIONS (13)
  - Injury [Unknown]
  - Abdominal pain upper [Unknown]
  - Vision blurred [Unknown]
  - Tachycardia [Unknown]
  - Product use in unapproved indication [Unknown]
  - Maternal exposure during pregnancy [Unknown]
  - Dyspnoea [Unknown]
  - Pre-eclampsia [Unknown]
  - Anxiety [Unknown]
  - Emotional distress [Unknown]
  - Anaemia [Unknown]
  - Premature delivery [Unknown]
  - Headache [Unknown]

NARRATIVE: CASE EVENT DATE: 20150819
